FAERS Safety Report 8555485-6 (Version None)
Quarter: 2012Q3

REPORT INFORMATION
  Report Type: 
  Country: None (occurrence: None)
  Receive Date: 20120731
  Receipt Date: 20120410
  Transmission Date: 20120928
  Serious: No
  Sender: FDA-Public Use
  Company Number: US-ASTRAZENECA-2011SE12837

PATIENT
  Age: 47 Year
  Sex: Male

DRUGS (1)
  1. SEROQUEL XR [Suspect]
     Route: 048

REACTIONS (4)
  - RHINORRHOEA [None]
  - MULTIPLE ALLERGIES [None]
  - DYSPHONIA [None]
  - BIPOLAR DISORDER [None]
